FAERS Safety Report 9172548 (Version 1)
Quarter: 2012Q4

REPORT INFORMATION
  Report Type: 
  Country: US (occurrence: US)
  Receive Date: 20120911
  Receipt Date: 20120911
  Transmission Date: 20130627
  Serious: Yes (Death)
  Sender: FDA-Public Use
  Company Number: PHHO2012US013097

PATIENT
  Age: 43 None
  Sex: Male
  Weight: 70.9 kg

DRUGS (2)
  1. AFINITOR [Suspect]
     Indication: NON-HODGKIN^S LYMPHOMA
     Dosage: UNK
     Dates: start: 20120606, end: 20120812
  2. LBH589 [Suspect]
     Indication: NON-HODGKIN^S LYMPHOMA
     Dosage: UNK
     Dates: start: 20120606, end: 20120812

REACTIONS (1)
  - Disease progression [Fatal]
